FAERS Safety Report 9523048 (Version 1)
Quarter: 2013Q1

REPORT INFORMATION
  Report Type: Spontaneous
  Country: US (occurrence: None)
  Receive Date: 20130305
  Receipt Date: 20130305
  Transmission Date: 20140127
  Serious: Yes (Hospitalization, Other)
  Sender: FDA-Public Use
  Company Number: 163-21880-12033005

PATIENT
  Age: 72 Year
  Sex: Male

DRUGS (3)
  1. REVLIMID (LENALIDOMIDE) (CAPSULES) [Suspect]
     Indication: PLASMA CELL MYELOMA
     Dosage: 1 IN 1 D
     Route: 048
     Dates: start: 20101105, end: 20110808
  2. ENOXAPARIN [Concomitant]
  3. ASA [Concomitant]

REACTIONS (3)
  - Phlebitis superficial [None]
  - Pneumonia [None]
  - Diarrhoea [None]
